FAERS Safety Report 7862109-X (Version None)
Quarter: 2011Q4

REPORT INFORMATION
  Report Type: 
  Country: None (occurrence: None)
  Receive Date: 20111027
  Receipt Date: 20101111
  Transmission Date: 20120403
  Serious: No
  Sender: FDA-Public Use
  Company Number: US-AMGEN-USASP2010004693

PATIENT
  Sex: Female

DRUGS (22)
  1. ENBREL [Suspect]
     Dosage: 50 MG, UNK
     Route: 058
  2. BENADRYL ALLERGY                   /00000402/ [Concomitant]
     Dosage: 25 MG, UNK
  3. PROPRANOLOL [Concomitant]
     Dosage: 10 MG, UNK
  4. VITAMIN D [Concomitant]
  5. LOMOTIL                            /00034001/ [Concomitant]
     Dosage: 2.5 MG, UNK
  6. FUROSEMIDE [Concomitant]
  7. HYDROCODONE BITARTRATE [Concomitant]
  8. MULTIVITAMIN                       /00097801/ [Concomitant]
  9. LEVOTHYROXINE SODIUM [Concomitant]
     Dosage: 200 UNK, UNK
  10. PLAQUENIL [Concomitant]
     Dosage: 200 MG, UNK
  11. NASONEX [Concomitant]
     Dosage: 50 UNK, UNK
  12. CIPRO                              /00042702/ [Concomitant]
     Dosage: 250 MG, UNK
  13. PROZAC [Concomitant]
     Dosage: 10 MG, UNK
  14. FISH OIL [Concomitant]
  15. TRAZODONE HYDROCHLORIDE [Concomitant]
     Dosage: 50 MG, UNK
  16. CLONAZEPAM [Concomitant]
     Dosage: 0.5 MG, UNK
  17. PROCHLORPERAZ [Concomitant]
     Indication: PRODUCT USED FOR UNKNOWN INDICATION
     Dosage: 5 MG, UNK
  18. DIAZEPAM [Concomitant]
     Dosage: 2 MG, UNK
  19. GLUCOSAMINE + CHONDROITIN [Concomitant]
  20. CALCIUM CARBONATE [Concomitant]
     Dosage: 500 MG, UNK
  21. METAMUCIL                          /00029101/ [Concomitant]
     Dosage: 0.52 G, UNK
  22. PREVACID [Concomitant]
     Dosage: 15 MG, UNK

REACTIONS (3)
  - LOCALISED INFECTION [None]
  - INJECTION SITE PRURITUS [None]
  - INJECTION SITE SWELLING [None]
